FAERS Safety Report 4823787-2 (Version None)
Quarter: 2005Q4

REPORT INFORMATION
  Report Type: 
  Country: None (occurrence: None)
  Receive Date: 20051109
  Receipt Date: 20041217
  Transmission Date: 20060501
  Serious: Yes (Hospitalization)
  Sender: FDA-Public Use
  Company Number: US-MERCK-0412USA02398

PATIENT
  Age: 80 Year
  Sex: Male
  Weight: 70 kg

DRUGS (17)
  1. VIOXX [Suspect]
     Indication: ARTHRITIS
     Route: 048
     Dates: start: 20010513, end: 20010521
  2. VIOXX [Suspect]
     Route: 048
     Dates: start: 20010521, end: 20040727
  3. VIOXX [Suspect]
     Route: 048
     Dates: start: 20010513, end: 20010521
  4. VIOXX [Suspect]
     Indication: ARTHRALGIA
     Route: 048
     Dates: start: 20010513, end: 20010521
  5. VIOXX [Suspect]
     Route: 048
     Dates: start: 20010521, end: 20040727
  6. VIOXX [Suspect]
     Route: 048
     Dates: start: 20010513, end: 20010521
  7. RANITIDINE [Concomitant]
     Route: 065
  8. HYTRIN [Concomitant]
     Route: 065
     Dates: start: 19990214
  9. PLENDIL [Concomitant]
     Route: 065
     Dates: end: 20021101
  10. LIPITOR [Concomitant]
     Route: 065
     Dates: start: 19991229
  11. GLUCOPHAGE [Concomitant]
     Route: 065
  12. PLAVIX [Concomitant]
     Route: 065
     Dates: start: 20021212, end: 20040130
  13. METOPROLOL [Concomitant]
     Route: 065
  14. NITROQUICK [Concomitant]
     Route: 065
  15. DIOVAN [Concomitant]
     Route: 065
     Dates: start: 20031104
  16. ZYRTEC [Concomitant]
     Route: 065
  17. DIUREX (HYDROCHLOROTHIAZIDE) [Concomitant]
     Route: 065

REACTIONS (11)
  - ANGINA UNSTABLE [None]
  - ANXIETY [None]
  - ASCITES [None]
  - CORONARY ARTERY DISEASE [None]
  - DEPRESSION [None]
  - DIARRHOEA [None]
  - DYSPNOEA [None]
  - MYOCARDIAL INFARCTION [None]
  - NAUSEA [None]
  - OEDEMA PERIPHERAL [None]
  - SINUS TACHYCARDIA [None]
